FAERS Safety Report 6865803-2 (Version None)
Quarter: 2010Q3

REPORT INFORMATION
  Report Type: 
  Country: None (occurrence: None)
  Receive Date: 20100720
  Receipt Date: 20100706
  Transmission Date: 20110219
  Serious: Yes (Hospitalization, Other)
  Sender: FDA-Public Use
  Company Number: AUR-APL-2010-01737

PATIENT
  Age: 91 Year
  Sex: Female

DRUGS (10)
  1. BISOPROLOL [Suspect]
     Dosage: 5 MG, DAILY, ORAL
     Route: 048
     Dates: end: 20100624
  2. DIGOXIN [Concomitant]
  3. ACETAMINOPHEN AND CODEINE PHOSPHATE [Concomitant]
  4. FUROSEMIDE [Concomitant]
  5. GEL TEARS [Concomitant]
  6. GLYCERYL TRINITRATE [Concomitant]
  7. LANSOPRAZOLE [Concomitant]
  8. NULYTELY [Concomitant]
  9. ACETAMINOPHEN [Concomitant]
  10. TEMAZEPAM [Concomitant]

REACTIONS (8)
  - ATRIAL FIBRILLATION [None]
  - BRADYCARDIA [None]
  - CHEST PAIN [None]
  - CONFUSIONAL STATE [None]
  - DIZZINESS [None]
  - DYSPNOEA [None]
  - NODAL RHYTHM [None]
  - PALLOR [None]
